FAERS Safety Report 15384502 (Version 1)
Quarter: 2018Q3

REPORT INFORMATION
  Report Type: Spontaneous
  Country: IE (occurrence: IE)
  Receive Date: 20180914
  Receipt Date: 20180914
  Transmission Date: 20181010
  Serious: Yes (Hospitalization, Other)
  Sender: FDA-Public Use
  Company Number: IE-ROCHE-2184251

PATIENT
  Sex: Female

DRUGS (1)
  1. MABTHERA [Suspect]
     Active Substance: RITUXIMAB
     Indication: RHEUMATOID ARTHRITIS
     Route: 065

REACTIONS (9)
  - Sepsis [Unknown]
  - Visual impairment [Unknown]
  - General physical health deterioration [Unknown]
  - Paraesthesia [Unknown]
  - Balance disorder [Unknown]
  - Nausea [Unknown]
  - Mobility decreased [Unknown]
  - Infection [Unknown]
  - Back pain [Unknown]
